FAERS Safety Report 7951958-5 (Version None)
Quarter: 2011Q4

REPORT INFORMATION
  Report Type: 
  Country: None (occurrence: None)
  Receive Date: 20111201
  Receipt Date: 20111128
  Transmission Date: 20120403
  Serious: Yes (Hospitalization, Other)
  Sender: FDA-Public Use
  Company Number: FI-PFIZER INC-2011277921

PATIENT
  Age: 45 Year
  Sex: Female
  Weight: 82 kg

DRUGS (5)
  1. VARENICLINE TARTRATE [Suspect]
     Dosage: UNK
     Dates: start: 20111028, end: 20111101
  2. OXAZEPAM [Suspect]
     Dosage: APPROXIMATELY THIRTY 15MG TABLETS
     Dates: start: 20111112, end: 20111112
  3. ABILIFY [Concomitant]
     Dosage: 15 MG, 1X/DAY
  4. LAMOTRIGINE [Concomitant]
     Dosage: 200 MG, 1X/DAY
  5. CYMBALTA [Concomitant]
     Dosage: 60 MG, 2X/DAY

REACTIONS (3)
  - SELF INJURIOUS BEHAVIOUR [None]
  - TOXICITY TO VARIOUS AGENTS [None]
  - FATIGUE [None]
